FAERS Safety Report 18149754 (Version 1)
Quarter: 2020Q3

REPORT INFORMATION
  Report Type: Spontaneous
  Country: CN (occurrence: CN)
  Receive Date: 20200814
  Receipt Date: 20200814
  Transmission Date: 20201103
  Serious: Yes (Hospitalization)
  Sender: FDA-Public Use
  Company Number: CN-BAXTER-2020BAX016394

PATIENT
  Age: 60 Year
  Sex: Female
  Weight: 53 kg

DRUGS (9)
  1. SODIUM CHLORIDE. [Suspect]
     Active Substance: SODIUM CHLORIDE
     Indication: MEDICATION DILUTION
     Dosage: 0.9% NS + ENDOXAN (1.1 G)
     Route: 041
     Dates: start: 20200701, end: 20200701
  2. 5% GLUCOSE  INJECTION [Suspect]
     Active Substance: DEXTROSE
     Indication: MEDICATION DILUTION
     Dosage: 5% GS + PIRARAUBICIN HYDROCHLORIDE (70 MG)
     Route: 041
     Dates: start: 20200701, end: 20200701
  3. VINDESINE SULFATE [Suspect]
     Active Substance: VINDESINE SULFATE
     Indication: LYMPHOMA
     Dosage: VINDESINE SULFATE + 0.9% NS (20 ML)
     Route: 041
     Dates: start: 20200701, end: 20200701
  4. ETOPOSIDE. [Suspect]
     Active Substance: ETOPOSIDE
     Indication: LYMPHOMA
     Dosage: ETOPOSIDE + SODIUM CHLORIDE (500 ML)
     Route: 041
     Dates: start: 20200701, end: 20200704
  5. PREDNISONE ACETATE [Suspect]
     Active Substance: PREDNISONE ACETATE
     Indication: LYMPHOMA
     Dosage: TABLET
     Route: 048
     Dates: start: 20200701, end: 20200706
  6. 0.9% SODIUM CHLORIDE INJECTION [Suspect]
     Active Substance: SODIUM CHLORIDE
     Indication: MEDICATION DILUTION
     Dosage: 0.9% NS + VINDESINE SULFATE (2 MG)
     Route: 041
     Dates: start: 20200701, end: 20200701
  7. SODIUM CHLORIDE. [Suspect]
     Active Substance: SODIUM CHLORIDE
     Indication: MEDICATION DILUTION
     Dosage: SODIUM CHLORIDE + ETOPOSIDE (80 MG)
     Route: 041
     Dates: start: 20200701, end: 20200704
  8. ENDOXAN [Suspect]
     Active Substance: CYCLOPHOSPHAMIDE
     Indication: LYMPHOMA
     Dosage: ENDOXAN + 0.9% NS (100 ML)
     Route: 041
     Dates: start: 20200701, end: 20200701
  9. PIRARUBICIN HYDROCHLORIDE [Suspect]
     Active Substance: PIRARUBICIN HYDROCHLORIDE
     Indication: LYMPHOMA
     Dosage: PIRARUBICIN HYDROCHLORIDE + 5% GS (100 ML)
     Route: 041
     Dates: start: 20200701, end: 20200701

REACTIONS (1)
  - Myelosuppression [Recovered/Resolved]

NARRATIVE: CASE EVENT DATE: 20200708
